FAERS Safety Report 11268284 (Version 1)
Quarter: 2015Q3

REPORT INFORMATION
  Report Type: Spontaneous
  Country: US (occurrence: US)
  Receive Date: 20150714
  Receipt Date: 20150714
  Transmission Date: 20151125
  Serious: Yes (Hospitalization)
  Sender: FDA-Public Use
  Company Number: US-GLENMARK PHARMACEUTICALS INC, USA.-2015GMK018158

PATIENT

DRUGS (3)
  1. URSODIOL. [Suspect]
     Active Substance: URSODIOL
     Indication: TRANSPLANT REJECTION
  2. PROGRAFT [Suspect]
     Active Substance: TACROLIMUS
     Indication: TRANSPLANT REJECTION
     Dosage: UNK
  3. RAPAMUNE [Suspect]
     Active Substance: SIROLIMUS
     Indication: LIVER TRANSPLANT
     Dosage: 1 MG, UNK

REACTIONS (7)
  - Immune system disorder [Unknown]
  - Chills [Unknown]
  - Off label use [Unknown]
  - Infection [Unknown]
  - Tremor [Unknown]
  - Pyrexia [Unknown]
  - Vomiting [Unknown]

NARRATIVE: CASE EVENT DATE: 20150506
